FAERS Safety Report 8666232 (Version 3)
Quarter: 2012Q4

REPORT INFORMATION
  Report Type: 
  Country: JP (occurrence: JP)
  Receive Date: 20120716
  Receipt Date: 20121008
  Transmission Date: 20130627
  Serious: Yes (Death, Life-Threatening)
  Sender: FDA-Public Use
  Company Number: JP-ROCHE-1069138

PATIENT
  Age: 62 Year
  Sex: Female
  Weight: 51 kg

DRUGS (10)
  1. PEGASYS [Suspect]
     Indication: HEPATITIS C
     Route: 058
     Dates: start: 20111119, end: 20111222
  2. PEGASYS [Suspect]
     Indication: HEPATITIS C
     Route: 058
     Dates: start: 20111230, end: 20120127
  3. PEGASYS [Suspect]
     Indication: HEPATITIS C
     Route: 058
     Dates: start: 20120203, end: 20120210
  4. PEGASYS [Suspect]
     Indication: HEPATITIS C
     Route: 058
     Dates: start: 20120217, end: 20120330
  5. WARFARIN [Concomitant]
     Route: 048
     Dates: start: 20090809
  6. ENALAPRIL [Concomitant]
     Route: 048
     Dates: start: 19960408
  7. AMLODIPINE [Concomitant]
     Route: 048
     Dates: start: 20031010
  8. BEHYD [Concomitant]
     Route: 048
     Dates: start: 20031010, end: 20120112
  9. ACETAMINOPHEN [Concomitant]
     Dosage: Single use
     Route: 048
     Dates: start: 20111110, end: 20111124
  10. BROTIZOLAM [Concomitant]
     Route: 048
     Dates: start: 20111110

REACTIONS (2)
  - Thrombotic thrombocytopenic purpura [Fatal]
  - Blood pressure decreased [Fatal]
